FAERS Safety Report 9887455 (Version 1)
Quarter: 2014Q1

REPORT INFORMATION
  Report Type: Spontaneous
  Country: FR (occurrence: None)
  Receive Date: 20140206
  Receipt Date: 20140206
  Transmission Date: 20141002
  Serious: Yes (Life-Threatening)
  Sender: FDA-Public Use
  Company Number: FR-014513

PATIENT
  Age: 25 Year
  Sex: Female
  Weight: 69 kg

DRUGS (4)
  1. PROPESS [Suspect]
     Indication: PRODUCT USED FOR UNKNOWN INDICATION
     Route: 067
     Dates: start: 20131208, end: 20131208
  2. LOXEN [Concomitant]
  3. TRANDATE [Concomitant]
  4. BETNESOL [Concomitant]

REACTIONS (10)
  - Maternal exposure during pregnancy [None]
  - Acute respiratory distress syndrome [None]
  - Tachycardia [None]
  - Caesarean section [None]
  - Blood pressure systolic increased [None]
  - Oedema peripheral [None]
  - Acute pulmonary oedema [None]
  - Hypercapnia [None]
  - Hypoxia [None]
  - Pleural effusion [None]
